FAERS Safety Report 17718151 (Version 1)
Quarter: 2020Q2

REPORT INFORMATION
  Report Type: Spontaneous
  Country: US (occurrence: US)
  Receive Date: 20200428
  Receipt Date: 20200428
  Transmission Date: 20200714
  Serious: Yes (Other)
  Sender: FDA-Public Use
  Company Number: US-TARO-2020TAR00840

PATIENT
  Age: 5 Year
  Sex: Female

DRUGS (2)
  1. IMIQUIMOD CREAM 5% [Suspect]
     Active Substance: IMIQUIMOD
     Indication: MOLLUSCUM CONTAGIOSUM
     Dosage: NIGHTLY FOR TWO WEEKS AND THEN THREE TIMES PER WEEK
     Route: 065
  2. IMIQUIMOD CREAM 5% [Suspect]
     Active Substance: IMIQUIMOD
     Indication: BULLOUS IMPETIGO

REACTIONS (2)
  - Pemphigus [Recovered/Resolved]
  - Off label use [Unknown]
